FAERS Safety Report 22764358 (Version 2)
Quarter: 2023Q4

REPORT INFORMATION
  Report Type: Spontaneous
  Country: US (occurrence: US)
  Receive Date: 20230731
  Receipt Date: 20231129
  Transmission Date: 20240110
  Serious: Yes (Life-Threatening, Other)
  Sender: FDA-Public Use
  Company Number: US-CIPLA LTD.-2023US04080

PATIENT

DRUGS (16)
  1. CYCLOPHOSPHAMIDE [Suspect]
     Active Substance: CYCLOPHOSPHAMIDE
     Indication: Pinealoblastoma
     Dosage: UNK (50%)- 2ND LINE, 3RD LINE, 5TH LINE
     Route: 065
  2. CYCLOPHOSPHAMIDE [Suspect]
     Active Substance: CYCLOPHOSPHAMIDE
     Dosage: UNK, 3RD LINE- 21 DAY THERAPY
     Route: 048
  3. CYCLOPHOSPHAMIDE [Suspect]
     Active Substance: CYCLOPHOSPHAMIDE
     Dosage: UNK, 5TH LINE
     Route: 065
  4. CARBOPLATIN [Suspect]
     Active Substance: CARBOPLATIN
     Indication: Pinealoblastoma
     Dosage: UNK, 4TH LINE
     Route: 065
  5. CARBOPLATIN [Suspect]
     Active Substance: CARBOPLATIN
     Dosage: UNK, 5TH LINE (1-3 CYCLES)
     Route: 065
  6. CELECOXIB [Suspect]
     Active Substance: CELECOXIB
     Indication: Pinealoblastoma
     Dosage: UNK, 3RD LINE- 21 DAY THERAPY
     Route: 065
  7. VINCRISTINE [Suspect]
     Active Substance: VINCRISTINE
     Indication: Pinealoblastoma
     Dosage: UNK, 2ND LINE
     Route: 065
  8. CISPLATIN [Suspect]
     Active Substance: CISPLATIN
     Indication: Pinealoblastoma
     Dosage: UNK- 2ND LINE
     Route: 065
  9. ETOPOSIDE [Suspect]
     Active Substance: ETOPOSIDE
     Indication: Pinealoblastoma
     Dosage: UNK, 3RD LINE- 21 DAY THERAPY
     Route: 048
  10. ETOPOSIDE [Suspect]
     Active Substance: ETOPOSIDE
     Dosage: UNK, 4TH LINE
     Route: 065
  11. ETOPOSIDE [Suspect]
     Active Substance: ETOPOSIDE
     Dosage: UNK, 5TH LINE
     Route: 065
  12. ETOPOPHOS [Suspect]
     Active Substance: ETOPOSIDE PHOSPHATE
     Indication: Pinealoblastoma
     Dosage: UNK, 2ND LINE
     Route: 065
  13. TEMOZOLOMIDE [Suspect]
     Active Substance: TEMOZOLOMIDE
     Indication: Pinealoblastoma
     Dosage: UNK, 3RD LINE, 21 DAY THERAPY
     Route: 048
  14. ISOTRETINOIN [Suspect]
     Active Substance: ISOTRETINOIN
     Indication: Pinealoblastoma
     Dosage: UNK, 3RD LINE- 21 DAY THERAPY
     Route: 065
  15. TOPOTECAN [Suspect]
     Active Substance: TOPOTECAN HYDROCHLORIDE
     Indication: Pinealoblastoma
     Dosage: UNK, EVERY 4 WEEKS (MONTHLY), 3RD LINE- 21 DAY THERAPY
     Route: 037
  16. IFOSFAMIDE [Concomitant]
     Active Substance: IFOSFAMIDE
     Indication: Pinealoblastoma
     Dosage: UNK, 4TH LINE
     Route: 065

REACTIONS (7)
  - Toxicity to various agents [Unknown]
  - Thrombotic microangiopathy [Recovered/Resolved]
  - Neutropenia [Unknown]
  - Irritability [Unknown]
  - Ataxia [Unknown]
  - Nausea [Unknown]
  - Vomiting [Unknown]
